FAERS Safety Report 8577581 (Version 2)
Quarter: 2013Q3

REPORT INFORMATION
  Report Type: Spontaneous
  Country: CA (occurrence: CA)
  Receive Date: 20120524
  Receipt Date: 20130712
  Transmission Date: 20140515
  Serious: Yes (Other)
  Sender: FDA-Public Use
  Company Number: CA-JNJFOC-20120510494

PATIENT
  Age: 45 Year
  Sex: Male
  Weight: 66.4 kg

DRUGS (12)
  1. REMICADE [Suspect]
     Indication: CROHN^S DISEASE
     Route: 042
     Dates: start: 20120510
  2. REMICADE [Suspect]
     Indication: CROHN^S DISEASE
     Route: 042
     Dates: start: 20120326
  3. REMICADE [Suspect]
     Indication: CROHN^S DISEASE
     Route: 042
     Dates: start: 20120209
  4. REMICADE [Suspect]
     Indication: CROHN^S DISEASE
     Route: 042
     Dates: start: 20111203
  5. REMICADE [Suspect]
     Indication: CROHN^S DISEASE
     Route: 042
     Dates: start: 20111117
  6. REMICADE [Suspect]
     Indication: CROHN^S DISEASE
     Route: 042
     Dates: start: 20111103
  7. ENTOCORT [Concomitant]
     Indication: CROHN^S DISEASE
     Route: 048
  8. PENTASA [Concomitant]
     Indication: CROHN^S DISEASE
     Dosage: 6 TO 8 TABLETS
     Route: 048
  9. IRON INFUSION [Concomitant]
     Route: 065
  10. CHOLESTYRAMINE [Concomitant]
     Route: 065
  11. TECTA [Concomitant]
     Route: 065
  12. ADVAIR [Concomitant]
     Indication: ASTHMA
     Route: 065

REACTIONS (8)
  - Urticaria [Recovered/Resolved]
  - Infusion related reaction [Recovered/Resolved]
  - Pruritus generalised [Recovered/Resolved]
  - Erythema [Recovered/Resolved]
  - Somnolence [Recovered/Resolved]
  - Flushing [Recovered/Resolved]
  - Chills [Unknown]
  - Blood pressure increased [Recovered/Resolved]
